FAERS Safety Report 21050512 (Version 1)
Quarter: 2022Q3

REPORT INFORMATION
  Report Type: Spontaneous
  Country: MY (occurrence: MY)
  Receive Date: 20220707
  Receipt Date: 20220707
  Transmission Date: 20221027
  Serious: Yes (Hospitalization, Other)
  Sender: FDA-Public Use
  Company Number: MY-ASTELLAS-2022US023925

PATIENT
  Age: 19 Year
  Sex: Female

DRUGS (5)
  1. TACROLIMUS [Suspect]
     Active Substance: TACROLIMUS
     Indication: Renal transplant
     Route: 065
     Dates: start: 2019
  2. MYCOPHENOLATE SODIUM [Concomitant]
     Active Substance: MYCOPHENOLATE SODIUM
     Indication: Renal transplant
     Route: 065
     Dates: start: 2019, end: 2019
  3. MYCOPHENOLATE SODIUM [Concomitant]
     Active Substance: MYCOPHENOLATE SODIUM
     Route: 065
     Dates: start: 2019, end: 2019
  4. MYCOPHENOLATE SODIUM [Concomitant]
     Active Substance: MYCOPHENOLATE SODIUM
     Route: 065
     Dates: start: 2019, end: 2019
  5. MYCOPHENOLATE SODIUM [Concomitant]
     Active Substance: MYCOPHENOLATE SODIUM
     Route: 065
     Dates: start: 2019

REACTIONS (6)
  - Pathogen resistance [Unknown]
  - Pyelonephritis acute [Recovering/Resolving]
  - Escherichia infection [Unknown]
  - Urinary tract infection [Recovered/Resolved]
  - Polyomavirus-associated nephropathy [Recovering/Resolving]
  - Cytomegalovirus nephritis [Recovering/Resolving]

NARRATIVE: CASE EVENT DATE: 20190101
